FAERS Safety Report 25156924 (Version 1)
Quarter: 2025Q2

REPORT INFORMATION
  Report Type: Spontaneous
  Country: US (occurrence: None)
  Receive Date: 20250403
  Receipt Date: 20250403
  Transmission Date: 20250717
  Serious: Yes (Hospitalization)
  Sender: FDA-CTU
  Company Number: None

PATIENT
  Sex: Female

DRUGS (3)
  1. PROCRIT [Suspect]
     Active Substance: ERYTHROPOIETIN
     Indication: Breast cancer female
     Route: 042
     Dates: start: 20250311
  2. NEULASTA [Suspect]
     Active Substance: PEGFILGRASTIM
     Indication: Anaemia
     Route: 058
     Dates: start: 20250311
  3. PERJETA [Suspect]
     Active Substance: PERTUZUMAB

REACTIONS (3)
  - Gastrointestinal infection [None]
  - Dyspnoea [None]
  - Diarrhoea [None]
